FAERS Safety Report 5223631-8 (Version None)
Quarter: 2007Q1

REPORT INFORMATION
  Report Type: 
  Country: None (occurrence: None)
  Receive Date: 20070130
  Receipt Date: 20070125
  Transmission Date: 20070707
  Serious: Yes (Other)
  Sender: FDA-Public Use
  Company Number: US-AVENTIS-200710530GDDC

PATIENT
  Age: 47 Year
  Sex: Female
  Weight: 77.6 kg

DRUGS (11)
  1. STUDY MED NOT GIVEN [Suspect]
  2. LANTUS [Suspect]
     Route: 058
     Dates: start: 20061121
  3. GLUCOPHAGE [Suspect]
     Route: 048
     Dates: start: 19990903
  4. ACTOS [Suspect]
     Route: 048
     Dates: start: 20050101
  5. ASPIRIN [Concomitant]
     Route: 048
     Dates: start: 20061102
  6. LISINOPRIL [Concomitant]
     Indication: HYPERTENSION
     Route: 048
     Dates: start: 20070111
  7. REGLAN                             /00041901/ [Concomitant]
     Indication: NAUSEA
     Route: 048
     Dates: start: 20070111
  8. GABAPENTIN [Concomitant]
     Indication: NEUROPATHY
     Route: 048
     Dates: start: 20061219
  9. SEROQUEL                           /01270902/ [Concomitant]
     Indication: DEPRESSION
     Route: 048
     Dates: start: 20061122
  10. HYDROCHLOROTHIAZIDE [Concomitant]
     Indication: HYPERTENSION
     Route: 048
     Dates: start: 20070111
  11. REMERON [Concomitant]
     Indication: DEPRESSION
     Route: 048
     Dates: start: 20061120

REACTIONS (1)
  - VOMITING [None]
